FAERS Safety Report 20233282 (Version 1)
Quarter: 2021Q4

REPORT INFORMATION
  Report Type: Spontaneous
  Country: US (occurrence: None)
  Receive Date: 20211226
  Receipt Date: 20211226
  Transmission Date: 20220303
  Serious: Yes (Other)
  Sender: FDA-Public Use
  Company Number: None

PATIENT
  Age: 67 Year
  Sex: Female
  Weight: 67.5 kg

DRUGS (6)
  1. NITROFURANTOIN [Suspect]
     Active Substance: NITROFURANTOIN
     Indication: Urinary tract infection
     Dosage: OTHER QUANTITY : 1 CAPSULE(S);?FREQUENCY : TWICE A DAY;?
     Route: 048
     Dates: start: 20211218, end: 20211223
  2. FAMOTIDINE [Concomitant]
     Active Substance: FAMOTIDINE
  3. ASPIRIN [Concomitant]
     Active Substance: ASPIRIN
  4. CALTRATE [Concomitant]
     Active Substance: CALCIUM CARBONATE
  5. VITAMIN D [Concomitant]
     Active Substance: VITAMIN D NOS
  6. Osteo bioflex [Concomitant]

REACTIONS (1)
  - Neuropathy peripheral [None]

NARRATIVE: CASE EVENT DATE: 20211220
